FAERS Safety Report 14178718 (Version 2)
Quarter: 2017Q4

REPORT INFORMATION
  Report Type: Spontaneous
  Country: JP (occurrence: JP)
  Receive Date: 20171110
  Receipt Date: 20171218
  Transmission Date: 20180321
  Serious: No
  Sender: FDA-Public Use
  Company Number: JP-FERRINGPH-2017FE03238

PATIENT

DRUGS (24)
  1. CLEAR BONE [Concomitant]
     Indication: BONE SCAN
     Dosage: UNK
     Dates: start: 20170208, end: 20170815
  2. MIYA-BM [Concomitant]
     Active Substance: CLOSTRIDIUM BUTYRICUM SPORES STRAIN M-55
     Indication: NASOPHARYNGITIS
     Dosage: UNK
     Route: 048
     Dates: start: 20170306, end: 20170312
  3. LEUPLIN [Concomitant]
     Active Substance: LEUPROLIDE ACETATE
     Dosage: 11.25 MG, EVERY 3RD MONTH
     Dates: start: 20170605
  4. ALFACALCIDOL [Concomitant]
     Active Substance: ALFACALCIDOL
     Indication: HYPOCALCAEMIA
     Dosage: UNK
     Dates: end: 20171101
  5. GASTROM [Concomitant]
     Active Substance: ECABET SODIUM
     Indication: GASTRIC ULCER
     Dosage: UNK
     Dates: end: 20171101
  6. CEREKINON [Concomitant]
     Active Substance: TRIMEBUTINE
     Indication: GASTRIC ULCER
     Dosage: UNK
     Dates: end: 20171101
  7. MARZULENE S [Concomitant]
     Active Substance: GLUTAMINE\SODIUM GUALENATE
     Indication: GASTRIC ULCER
     Dosage: UNK
     Dates: end: 20171101
  8. CARVEDILOL. [Concomitant]
     Active Substance: CARVEDILOL
     Indication: AORTIC VALVE INCOMPETENCE
     Dosage: UNK
     Dates: end: 20171101
  9. ASVERIN                            /00465502/ [Concomitant]
     Indication: PROPHYLAXIS
     Dosage: UNK
     Dates: start: 20170703, end: 20171101
  10. ODYNE [Concomitant]
     Active Substance: FLUTAMIDE
     Dosage: 125 MG, 3 TIMES DAILY
     Dates: start: 20170829, end: 20171101
  11. BERIZYM                            /01945301/ [Concomitant]
     Indication: GASTRIC ULCER
     Dosage: UNK
     Dates: end: 20071101
  12. ZANTAC [Concomitant]
     Active Substance: RANITIDINE HYDROCHLORIDE
     Indication: GASTRIC ULCER
     Dosage: UNK
     Dates: end: 20171101
  13. GONAX [Suspect]
     Active Substance: DEGARELIX
     Indication: PROSTATE CANCER
     Dosage: 80 MG, MONTHLY
     Route: 058
     Dates: start: 20160216, end: 20170508
  14. HEAVY MAGNESIUM OXIDE [Concomitant]
     Active Substance: MAGNESIUM OXIDE
     Indication: GASTRIC ULCER
     Dosage: UNK
     Route: 048
     Dates: end: 20171101
  15. AVAPRO [Concomitant]
     Active Substance: IRBESARTAN
     Indication: HYPERTENSION
     Dosage: UNK
     Dates: end: 20171101
  16. CARBOCISTEINE [Concomitant]
     Active Substance: CARBOCYSTEINE
     Indication: PROPHYLAXIS
     Dosage: UNK
     Dates: start: 20170703, end: 20170709
  17. NERIPROCT [Concomitant]
     Active Substance: DIFLUCORTOLONE VALERATE\LIDOCAINE
     Indication: HAEMORRHOIDS
     Dosage: UNK
     Dates: start: 20170704
  18. POPIDON [Concomitant]
     Indication: PROPHYLAXIS
     Dosage: UNK
     Dates: start: 20170607
  19. XTANDI [Suspect]
     Active Substance: ENZALUTAMIDE
     Indication: HORMONE-REFRACTORY PROSTATE CANCER
     Dosage: 160 MG, 1 TIME DAILY
     Route: 048
     Dates: start: 20170307, end: 20170828
  20. GASMOTIN [Concomitant]
     Active Substance: MOSAPRIDE CITRATE
     Indication: GASTRIC ULCER
     Dosage: UNK
     Dates: end: 20171101
  21. RANMARK [Concomitant]
     Active Substance: DENOSUMAB
     Indication: METASTASES TO BONE
     Dosage: UNK
  22. HARNAL [Concomitant]
     Active Substance: TAMSULOSIN HYDROCHLORIDE
     Indication: BENIGN PROSTATIC HYPERPLASIA
     Dosage: UNK
     Dates: end: 20171101
  23. IOMERON [Concomitant]
     Active Substance: IOMEPROL
     Indication: COMPUTERISED TOMOGRAM
     Dosage: UNK
     Dates: start: 20170208, end: 20170815
  24. GASCON [Concomitant]
     Active Substance: DIMETHICONE
     Indication: ABDOMINAL DISTENSION
     Dosage: UNK
     Dates: start: 20170306, end: 20171101

REACTIONS (2)
  - Decreased appetite [Not Recovered/Not Resolved]
  - Injection site pain [Recovered/Resolved]

NARRATIVE: CASE EVENT DATE: 20170410
